FAERS Safety Report 7246936-8 (Version None)
Quarter: 2011Q1

REPORT INFORMATION
  Report Type: 
  Country: None (occurrence: None)
  Receive Date: 20110127
  Receipt Date: 20110124
  Transmission Date: 20110831
  Serious: Yes (Hospitalization)
  Sender: FDA-Public Use
  Company Number: US-ABBOTT-11P-163-0700491-00

PATIENT
  Sex: Female
  Weight: 68.1 kg

DRUGS (8)
  1. BENAZAPRIL HCL [Concomitant]
     Indication: HYPERTENSION
  2. UNKNOWN INHALER [Concomitant]
     Indication: ASTHMA
  3. HYDROCHLOROTHIAZIDE [Concomitant]
     Indication: HYPERTENSION
  4. HUMIRA [Suspect]
  5. SIMVASTATIN [Concomitant]
     Indication: BLOOD CHOLESTEROL INCREASED
  6. HUMIRA [Suspect]
     Indication: PSORIASIS
     Dates: start: 20090501, end: 20090907
  7. HUMIRA [Suspect]
     Dates: end: 20091013
  8. UNKNOWN VITAMINS [Concomitant]
     Indication: VITAMIN SUPPLEMENTATION

REACTIONS (7)
  - ANEURYSM [None]
  - HEADACHE [None]
  - ROAD TRAFFIC ACCIDENT [None]
  - WHIPLASH INJURY [None]
  - SPEECH DISORDER [None]
  - CONFUSIONAL STATE [None]
  - NECK PAIN [None]
